FAERS Safety Report 25895075 (Version 2)
Quarter: 2025Q4

REPORT INFORMATION
  Report Type: Report from Study
  Country: US (occurrence: US)
  Receive Date: 20251008
  Receipt Date: 20251217
  Transmission Date: 20260118
  Serious: Yes (Other)
  Sender: AVERITAS
  Company Number: US-GRUNENTHAL-2025-123424

PATIENT
  Age: 57 Year
  Sex: Female

DRUGS (2)
  1. QUTENZA [Suspect]
     Active Substance: CAPSAICIN
     Indication: Diabetic neuropathy
     Dosage: 1 DOSAGE FORM, ONCE
     Route: 061
     Dates: start: 20250915, end: 20250915
  2. QUTENZA [Suspect]
     Active Substance: CAPSAICIN
     Dosage: UNK UNK, ONCE
     Route: 061
     Dates: start: 20251210, end: 20251210

REACTIONS (5)
  - Choking [Unknown]
  - Pain in extremity [Unknown]
  - Burning sensation [Unknown]
  - Exposure via inhalation [Unknown]
  - Burning sensation [Unknown]

NARRATIVE: CASE EVENT DATE: 20251210
